FAERS Safety Report 8351426 (Version 2)
Quarter: 2015Q4

REPORT INFORMATION
  Report Type: Report from Study
  Country: GB (occurrence: GB)
  Receive Date: 20120124
  Receipt Date: 20151029
  Transmission Date: 20160305
  Serious: Yes (Hospitalization)
  Sender: FDA-Public Use
  Company Number: GB-ROCHE-1030641

PATIENT
  Age: 70 Year
  Sex: Female

DRUGS (3)
  1. RITUXIMAB [Suspect]
     Active Substance: RITUXIMAB
     Indication: RHEUMATOID ARTHRITIS
     Route: 042
     Dates: start: 20081125, end: 20110810
  2. METHOTREXATE [Concomitant]
     Active Substance: METHOTREXATE
  3. RITUXIMAB [Suspect]
     Active Substance: RITUXIMAB
     Dosage: LAST DOSE PRIOR TO EVENT: 11/JUL/2014
     Route: 042
     Dates: start: 20111109

REACTIONS (3)
  - Gastroenteritis viral [Unknown]
  - Abdominal pain [Unknown]
  - Lung consolidation [Unknown]

NARRATIVE: CASE EVENT DATE: 20110815
